FAERS Safety Report 10400963 (Version 1)
Quarter: 2014Q1

REPORT INFORMATION
  Report Type: Spontaneous
  Country: US (occurrence: None)
  Receive Date: 20130815
  Receipt Date: 20130815
  Transmission Date: 20141002
  Serious: Yes (Hospitalization, Other)
  Sender: FDA-Public Use
  Company Number: ADR-2012-02136

PATIENT
  Age: 88 Year
  Sex: Male

DRUGS (3)
  1. BACLOFEN UNKNOWN (BACLOFEN INTRATHECAL) [Suspect]
     Indication: PAIN
     Dosage: UNKNOWN DOSAGE INJECTION INTRATHECAL
     Route: 037
  2. DILAUDID (HYDROMORPHONE) [Concomitant]
  3. PERCOCET [Concomitant]

REACTIONS (1)
  - Pain [None]
